FAERS Safety Report 16834227 (Version 1)
Quarter: 2019Q3

REPORT INFORMATION
  Report Type: Spontaneous
  Country: FR (occurrence: FR)
  Receive Date: 20190920
  Receipt Date: 20190920
  Transmission Date: 20191005
  Serious: Yes (Other)
  Sender: FDA-Public Use
  Company Number: FR-PFIZER INC-2019400605

PATIENT
  Age: 32 Year
  Sex: Male

DRUGS (5)
  1. GRANUPAS [Suspect]
     Active Substance: AMINOSALICYLIC ACID
     Indication: LYMPH NODE TUBERCULOSIS
     Dosage: 12 G, 1X/DAY
     Route: 048
     Dates: start: 20160924
  2. CYCLOSERIN [Suspect]
     Active Substance: CYCLOSERINE
     Indication: LYMPH NODE TUBERCULOSIS
     Dosage: 500 MG, 1X/DAY
     Route: 048
     Dates: start: 20160924
  3. AMIKACIN. [Suspect]
     Active Substance: AMIKACIN
     Indication: LYMPH NODE TUBERCULOSIS
     Dosage: 1500 MG, WEEKLY
     Route: 042
     Dates: start: 20160924
  4. SIRTURO [Suspect]
     Active Substance: BEDAQUILINE FUMARATE
     Indication: LYMPH NODE TUBERCULOSIS
     Dosage: 600 MG, WEEKLY
     Route: 048
     Dates: start: 20160924
  5. LINEZOLID. [Suspect]
     Active Substance: LINEZOLID
     Indication: LYMPH NODE TUBERCULOSIS
     Dosage: 600 MG, 1X/DAY
     Route: 048
     Dates: start: 20160924

REACTIONS (3)
  - Off label use [Unknown]
  - Electrocardiogram T wave inversion [Recovering/Resolving]
  - Product use in unapproved indication [Unknown]

NARRATIVE: CASE EVENT DATE: 20160924
